FAERS Safety Report 16317271 (Version 2)
Quarter: 2019Q2

REPORT INFORMATION
  Report Type: Spontaneous
  Country: DE (occurrence: DE)
  Receive Date: 20190515
  Receipt Date: 20190618
  Transmission Date: 20190711
  Serious: Yes (Hospitalization, Other)
  Sender: FDA-Public Use
  Company Number: DE-TEVA-2019-DE-1049126

PATIENT
  Age: 38 Year
  Sex: Female
  Weight: 82 kg

DRUGS (1)
  1. LEVOFLOXACIN-RATIOPHARM 500 MG FILMTABLETTEN [Suspect]
     Active Substance: LEVOFLOXACIN
     Indication: CYSTITIS
     Dosage: 500 MILLIGRAM DAILY; FOR 5 DAYS
     Route: 048
     Dates: start: 20171211, end: 20171215

REACTIONS (21)
  - Paraesthesia [Not Recovered/Not Resolved]
  - Fatigue [Recovered/Resolved with Sequelae]
  - Disturbance in attention [Recovered/Resolved with Sequelae]
  - Dyspepsia [Recovered/Resolved with Sequelae]
  - Impaired work ability [Not Recovered/Not Resolved]
  - Abdominal distension [Recovered/Resolved with Sequelae]
  - Cerebrovascular accident [Recovered/Resolved with Sequelae]
  - Restlessness [Not Recovered/Not Resolved]
  - Muscular weakness [Recovered/Resolved with Sequelae]
  - Photophobia [Recovered/Resolved with Sequelae]
  - Arthralgia [Not Recovered/Not Resolved]
  - Food intolerance [Recovered/Resolved with Sequelae]
  - Tremor [Recovered/Resolved with Sequelae]
  - Dizziness [Not Recovered/Not Resolved]
  - Eye pain [Recovered/Resolved with Sequelae]
  - Cyanosis [Recovered/Resolved with Sequelae]
  - Respiration abnormal [Recovered/Resolved with Sequelae]
  - Pallor [Recovered/Resolved with Sequelae]
  - Blood pressure increased [Recovered/Resolved with Sequelae]
  - Vision blurred [Recovered/Resolved with Sequelae]
  - Dry skin [Recovered/Resolved with Sequelae]

NARRATIVE: CASE EVENT DATE: 20180101
